FAERS Safety Report 10925898 (Version 2)
Quarter: 2015Q1

REPORT INFORMATION
  Report Type: Spontaneous
  Country: US (occurrence: US)
  Receive Date: 20150318
  Receipt Date: 20150326
  Transmission Date: 20150721
  Serious: Yes (Death)
  Sender: FDA-Public Use
  Company Number: US-JNJFOC-20150211310

PATIENT
  Age: 85 Year
  Sex: Male
  Weight: 54 kg

DRUGS (9)
  1. NIFEDIPINE. [Concomitant]
     Active Substance: NIFEDIPINE
  2. FLOMAX [Concomitant]
     Active Substance: TAMSULOSIN HYDROCHLORIDE
  3. ASPIRIN. [Concomitant]
     Active Substance: ASPIRIN
     Dates: start: 20140114
  4. IMBRUVICA [Suspect]
     Active Substance: IBRUTINIB
     Indication: CHRONIC LYMPHOCYTIC LEUKAEMIA
     Route: 048
     Dates: start: 201409
  5. LOVASTATIN. [Concomitant]
     Active Substance: LOVASTATIN
  6. CENTRUM SILVER [Concomitant]
     Active Substance: VITAMINS
     Route: 048
     Dates: start: 20140114
  7. IMBRUVICA [Suspect]
     Active Substance: IBRUTINIB
     Indication: CHRONIC LYMPHOCYTIC LEUKAEMIA
     Route: 048
     Dates: start: 201312, end: 201401
  8. PANTOPRAZOLE [Concomitant]
     Active Substance: PANTOPRAZOLE SODIUM
     Route: 048
     Dates: start: 20140114
  9. LEVOTHYROXINE [Concomitant]
     Active Substance: LEVOTHYROXINE
     Route: 048
     Dates: start: 20140114

REACTIONS (10)
  - Drug tolerance decreased [Unknown]
  - Lymphocytosis [Unknown]
  - Asthenia [Not Recovered/Not Resolved]
  - Myalgia [Unknown]
  - Juvenile melanoma benign [Unknown]
  - Lymphadenopathy [Not Recovered/Not Resolved]
  - Death [Fatal]
  - Blood urea increased [Unknown]
  - Cardiac murmur [Unknown]
  - Contusion [Not Recovered/Not Resolved]

NARRATIVE: CASE EVENT DATE: 201401
